FAERS Safety Report 23341619 (Version 1)
Quarter: 2023Q4

REPORT INFORMATION
  Report Type: Spontaneous
  Country: US (occurrence: US)
  Receive Date: 20231227
  Receipt Date: 20231227
  Transmission Date: 20240110
  Serious: Yes (Other)
  Sender: FDA-Public Use
  Company Number: US-MLMSERVICE-20231130-4700355-1

PATIENT

DRUGS (1)
  1. HYDROXYCHLOROQUINE [Suspect]
     Active Substance: HYDROXYCHLOROQUINE
     Indication: Systemic lupus erythematosus
     Dosage: 200 MG, BID (PLAQUENIL)
     Route: 065

REACTIONS (7)
  - Acquired pigmented retinopathy [Unknown]
  - Retinitis pigmentosa [Unknown]
  - Night blindness [Unknown]
  - Optic atrophy [Unknown]
  - Retinal artery stenosis [Unknown]
  - Retinal depigmentation [Unknown]
  - Visual field defect [Unknown]
